FAERS Safety Report 8328328-3 (Version None)
Quarter: 2012Q2

REPORT INFORMATION
  Report Type: 
  Country: None (occurrence: None)
  Receive Date: 20120502
  Receipt Date: 20120419
  Transmission Date: 20120825
  Serious: Yes (Hospitalization)
  Sender: FDA-Public Use
  Company Number: SE-PFIZER INC-2012105628

PATIENT
  Age: 74 Year
  Sex: Male

DRUGS (6)
  1. ATACAND [Concomitant]
     Dosage: UNK
     Route: 065
     Dates: start: 20070101
  2. GLUCOPHAGE [Suspect]
     Indication: TYPE 2 DIABETES MELLITUS
     Dosage: UNK
     Route: 048
     Dates: start: 20010201
  3. ACETAMINOPHEN [Concomitant]
     Dosage: UNK
     Route: 065
     Dates: start: 20081117
  4. SAXAGLIPTIN [Suspect]
     Indication: TYPE 2 DIABETES MELLITUS
     Dosage: UNK
     Route: 065
     Dates: start: 20081009
  5. IBUPROFEN [Suspect]
     Indication: SCIATICA
     Dosage: UNK
     Route: 065
     Dates: start: 20081117, end: 20090219
  6. TIPAROL [Concomitant]
     Dosage: UNK
     Route: 065
     Dates: start: 20081117

REACTIONS (2)
  - ANAEMIA [None]
  - ULCER HAEMORRHAGE [None]
